FAERS Safety Report 6539743-2 (Version None)
Quarter: 2010Q1

REPORT INFORMATION
  Report Type: 
  Country: None (occurrence: None)
  Receive Date: 20100115
  Receipt Date: 20100105
  Transmission Date: 20100710
  Serious: Yes (Disabling, Other)
  Sender: FDA-Public Use
  Company Number: US-MERCK-0904USA02821

PATIENT
  Age: 72 Year
  Sex: Female
  Weight: 91 kg

DRUGS (2)
  1. FOSAMAX PLUS D [Suspect]
     Indication: OSTEOPENIA
     Route: 048
     Dates: start: 20051124, end: 20070801
  2. FOSAMAX [Suspect]
     Indication: OSTEOPENIA
     Route: 048
     Dates: start: 20041210

REACTIONS (35)
  - ABSCESS [None]
  - ALLERGY TO ARTHROPOD STING [None]
  - ARTHROPATHY [None]
  - ATROPHY [None]
  - BALANCE DISORDER [None]
  - BLOOD CHOLESTEROL INCREASED [None]
  - BLOOD COUNT ABNORMAL [None]
  - BONE DISORDER [None]
  - BONE FRAGMENTATION [None]
  - BRONCHITIS [None]
  - CHRONIC OBSTRUCTIVE PULMONARY DISEASE [None]
  - CONSTIPATION [None]
  - DENTAL CARIES [None]
  - DERMATITIS CONTACT [None]
  - DRUG HYPERSENSITIVITY [None]
  - DYSLIPIDAEMIA [None]
  - EUSTACHIAN TUBE DYSFUNCTION [None]
  - FACIAL NERVE DISORDER [None]
  - FACIAL PARESIS [None]
  - HAEMORRHAGIC ANAEMIA [None]
  - INCISION SITE CELLULITIS [None]
  - LIP NEOPLASM [None]
  - OBESITY [None]
  - ORAL DISORDER [None]
  - ORAL PAIN [None]
  - OSTEONECROSIS [None]
  - PERIODONTAL DISEASE [None]
  - POLLAKIURIA [None]
  - PRODUCTIVE COUGH [None]
  - SPINAL CORD DISORDER [None]
  - STRESS URINARY INCONTINENCE [None]
  - TOOTH ABSCESS [None]
  - UPPER RESPIRATORY TRACT INFECTION [None]
  - URINARY TRACT INFECTION [None]
  - WOUND INFECTION [None]
